FAERS Safety Report 12409330 (Version 2)
Quarter: 2016Q3

REPORT INFORMATION
  Report Type: Report from Study
  Country: US (occurrence: US)
  Receive Date: 20160526
  Receipt Date: 20160822
  Transmission Date: 20161109
  Serious: No
  Sender: FDA-Public Use
  Company Number: PHHY2014US160325

PATIENT
  Age: 44 Year
  Sex: Male

DRUGS (1)
  1. GILENYA [Suspect]
     Active Substance: FINGOLIMOD HYDROCHLORIDE
     Indication: MULTIPLE SCLEROSIS
     Dosage: UNK UNK, QD
     Route: 048

REACTIONS (4)
  - Alanine aminotransferase increased [Unknown]
  - Panic attack [Unknown]
  - Blood glucose increased [Unknown]
  - Anxiety [Unknown]

NARRATIVE: CASE EVENT DATE: 20140902
